FAERS Safety Report 22076814 (Version 2)
Quarter: 2023Q1

REPORT INFORMATION
  Report Type: Spontaneous
  Country: US (occurrence: US)
  Receive Date: 20230309
  Receipt Date: 20230325
  Transmission Date: 20230418
  Serious: Yes (Hospitalization)
  Sender: FDA-Public Use
  Company Number: US-AUROBINDO-AUR-APL-2023-010650

PATIENT
  Age: 82 Year
  Sex: Female

DRUGS (4)
  1. METHYLPREDNISOLONE [Suspect]
     Active Substance: METHYLPREDNISOLONE
     Indication: Dyschromatopsia
     Dosage: 1 GRAM, ONCE A DAY,FOR THREE DAYS A WEEK FOR 2 WEEKS
     Route: 042
  2. METHYLPREDNISOLONE [Suspect]
     Active Substance: METHYLPREDNISOLONE
     Indication: Diplopia
  3. SELENIUM [Suspect]
     Active Substance: SELENIUM
     Indication: Diplopia
     Dosage: UNK
     Route: 065
  4. SELENIUM [Suspect]
     Active Substance: SELENIUM
     Indication: Dyschromatopsia

REACTIONS (1)
  - Drug ineffective [Unknown]
